FAERS Safety Report 19154428 (Version 1)
Quarter: 2021Q2

REPORT INFORMATION
  Report Type: Spontaneous
  Country: HR (occurrence: HR)
  Receive Date: 20210419
  Receipt Date: 20210419
  Transmission Date: 20210717
  Serious: Yes (Other)
  Sender: FDA-Public Use
  Company Number: HR-TEVA-2021-HR-1901716

PATIENT
  Age: 56 Year
  Sex: Female

DRUGS (16)
  1. CETRIZIN (CEFATRIZINE) [Suspect]
     Active Substance: CEFATRIZINE
     Indication: PRODUCT USED FOR UNKNOWN INDICATION
     Dosage: 10 M, 1+1+2 TBL, THERAPY START AND END DATE: ASKU
     Route: 065
  2. PANTOPRAZOLE [Suspect]
     Active Substance: PANTOPRAZOLE
     Indication: PRODUCT USED FOR UNKNOWN INDICATION
     Dosage: 20 MG, THERAPY START AND END DATE: ASKU
     Route: 065
  3. ACITRETINE [Suspect]
     Active Substance: ACITRETIN
     Indication: PUSTULAR PSORIASIS
     Dosage: THERAPY START AND END DATE: ASKU
     Route: 065
  4. DESLORATADIN [Suspect]
     Active Substance: DESLORATADINE
     Indication: PRODUCT USED FOR UNKNOWN INDICATION
     Dosage: THERAPY START AND END DATE: ASKU
     Route: 065
  5. LORTADINE [Suspect]
     Active Substance: LORATADINE
     Indication: PRODUCT USED FOR UNKNOWN INDICATION
     Dosage: THERAPY START AND END DATE: ASKU
     Route: 065
  6. PIOGLITAZONE. [Suspect]
     Active Substance: PIOGLITAZONE
     Indication: PRODUCT USED FOR UNKNOWN INDICATION
     Dosage: THERAPY START AND END DATE: ASKU
     Route: 065
  7. KETOPROFEN. [Suspect]
     Active Substance: KETOPROFEN
     Indication: PRODUCT USED FOR UNKNOWN INDICATION
     Dosage: THERAPY START AND END DATE: ASKU
     Route: 065
  8. METHYLPREDNISOLONE. [Suspect]
     Active Substance: METHYLPREDNISOLONE
     Indication: PUSTULAR PSORIASIS
     Dosage: 8 MILLIGRAM DAILY; THERAPY END DATE: ASKU
     Route: 065
     Dates: start: 202008
  9. BILASTINE [Suspect]
     Active Substance: BILASTINE
     Indication: PRODUCT USED FOR UNKNOWN INDICATION
     Dosage: THERAPY START AND END DATE: ASKU
     Route: 065
  10. RISANKIZUMAB [Suspect]
     Active Substance: RISANKIZUMAB
     Indication: PUSTULAR PSORIASIS
     Dosage: Q3MO, THERAPY END DATE: ASKU
     Route: 058
     Dates: start: 201912
  11. ADALIMUMAB [Suspect]
     Active Substance: ADALIMUMAB
     Indication: PUSTULAR PSORIASIS
     Dosage: THERAPY START AND END DATE: ASKU
     Route: 065
  12. DICLOFENAC [Suspect]
     Active Substance: DICLOFENAC
     Indication: PRODUCT USED FOR UNKNOWN INDICATION
     Dosage: THERAPY START AND END DATE: ASKU
     Route: 065
  13. METHOTREXATE. [Suspect]
     Active Substance: METHOTREXATE
     Indication: PUSTULAR PSORIASIS
     Dosage: 15 MG, THERAPY END DATE: ASKU
     Route: 065
     Dates: start: 202005
  14. COSENTYX [Suspect]
     Active Substance: SECUKINUMAB
     Indication: PUSTULAR PSORIASIS
     Dosage: THERAPY START AND END DATE: ASKU
     Route: 065
  15. IBUPROFEN. [Suspect]
     Active Substance: IBUPROFEN
     Indication: PRODUCT USED FOR UNKNOWN INDICATION
     Dosage: THERAPY START AND END DATE: ASKU
     Route: 065
  16. APREMILAST [Suspect]
     Active Substance: APREMILAST
     Indication: PUSTULAR PSORIASIS
     Dosage: THERAPY START AND END DATE: ASKU
     Route: 065

REACTIONS (12)
  - Face oedema [Unknown]
  - Drug ineffective [Unknown]
  - Arthralgia [Unknown]
  - Product use in unapproved indication [Unknown]
  - Diarrhoea [Recovered/Resolved]
  - Erythema [Recovering/Resolving]
  - Fatigue [Unknown]
  - Inflammatory bowel disease [Recovered/Resolved]
  - Urticaria [Unknown]
  - Asthenia [Unknown]
  - Weight decreased [Recovering/Resolving]
  - Myalgia [Unknown]

NARRATIVE: CASE EVENT DATE: 201911
